FAERS Safety Report 12673082 (Version 2)
Quarter: 2016Q3

REPORT INFORMATION
  Report Type: Report from Study
  Country: ZA (occurrence: ZA)
  Receive Date: 20160822
  Receipt Date: 20160901
  Transmission Date: 20161109
  Serious: Yes (Other)
  Sender: FDA-Public Use
  Company Number: PHHY2016ZA113730

PATIENT
  Sex: Female

DRUGS (2)
  1. ACLASTA [Suspect]
     Active Substance: ZOLEDRONIC ACID
     Dosage: 1 DF (5 MG/100 ML), Q12MO
     Route: 041
     Dates: start: 201512
  2. ACLASTA [Suspect]
     Active Substance: ZOLEDRONIC ACID
     Indication: OSTEOPOROSIS
     Dosage: 1 DF (5 MG/100 ML), Q12MO
     Route: 041
     Dates: start: 201312

REACTIONS (5)
  - Eye haemorrhage [Unknown]
  - Dry eye [Not Recovered/Not Resolved]
  - Vasodilatation [Unknown]
  - Sneezing [Unknown]
  - Blood iron decreased [Recovered/Resolved]
